FAERS Safety Report 18871155 (Version 2)
Quarter: 2021Q1

REPORT INFORMATION
  Report Type: Report from Study
  Country: FR (occurrence: FR)
  Receive Date: 20210210
  Receipt Date: 20210223
  Transmission Date: 20210420
  Serious: Yes (Hospitalization)
  Sender: FDA-Public Use
  Company Number: FR-ROCHE-2761319

PATIENT
  Age: 62 Year
  Sex: Female

DRUGS (14)
  1. DEXAMETHASONE SODIUM PHOSPHATE. [Suspect]
     Active Substance: DEXAMETHASONE SODIUM PHOSPHATE
     Indication: COVID-19
     Route: 042
     Dates: start: 20201028, end: 20201029
  2. DEXAMETHASONE SODIUM PHOSPHATE. [Suspect]
     Active Substance: DEXAMETHASONE SODIUM PHOSPHATE
     Route: 042
     Dates: start: 20201029, end: 20201031
  3. ESOMEPRAZOLE. [Concomitant]
     Active Substance: ESOMEPRAZOLE MAGNESIUM
     Dates: start: 20200601
  4. BACTRIM [Concomitant]
     Active Substance: SULFAMETHOXAZOLE\TRIMETHOPRIM
  5. LANSOPRAZOL [Concomitant]
     Active Substance: LANSOPRAZOLE
  6. LANTUS [Concomitant]
     Active Substance: INSULIN GLARGINE
  7. CREON [Concomitant]
     Active Substance: PANCRELIPASE AMYLASE\PANCRELIPASE LIPASE\PANCRELIPASE PROTEASE
  8. INEXIUM [Concomitant]
     Active Substance: ESOMEPRAZOLE
  9. TOCILIZUMAB. [Suspect]
     Active Substance: TOCILIZUMAB
     Indication: COVID-19
     Route: 042
     Dates: start: 20201028, end: 20201028
  10. TOCILIZUMAB. [Suspect]
     Active Substance: TOCILIZUMAB
     Route: 042
     Dates: start: 20201030, end: 20201030
  11. PHENOXYMETHYLPENICILLINE [Concomitant]
  12. LYSINE ACETYLSALICYLATE [Concomitant]
     Active Substance: ASPIRIN DL-LYSINE
     Dates: start: 20201109
  13. NOVORAPID [Concomitant]
     Active Substance: INSULIN ASPART
  14. HYPNOVEL [Concomitant]
     Active Substance: MIDAZOLAM

REACTIONS (4)
  - Cholestasis [Recovered/Resolved with Sequelae]
  - Hepatocellular injury [Recovered/Resolved with Sequelae]
  - Cardiac disorder [Recovered/Resolved with Sequelae]
  - Haemodynamic instability [Recovered/Resolved with Sequelae]

NARRATIVE: CASE EVENT DATE: 20201029
